FAERS Safety Report 7700472-0 (Version None)
Quarter: 2011Q3

REPORT INFORMATION
  Report Type: 
  Country: None (occurrence: None)
  Receive Date: 20110817
  Receipt Date: 20110805
  Transmission Date: 20111222
  Serious: Yes (Life-Threatening)
  Sender: FDA-Public Use
  Company Number: TCI2011A04365

PATIENT
  Age: 48 Year
  Sex: Male

DRUGS (7)
  1. ZETIA [Concomitant]
  2. AMARYL (GLMEPRIDIE) [Concomitant]
  3. BEZATOL SR (BEZAFIBRATE) [Concomitant]
  4. MICARDIS [Concomitant]
  5. GASTROM (ECABET MONOSODIUM) [Concomitant]
  6. RABEPRAZOLE SODIUM [Concomitant]
  7. ACTOS [Suspect]
     Dosage: 15 MG (15 MG,1 IN 1 D)
     Route: 048
     Dates: start: 20090612, end: 20090710

REACTIONS (1)
  - BLADDER CANCER [None]
